FAERS Safety Report 6081288-0 (Version None)
Quarter: 2009Q1

REPORT INFORMATION
  Report Type: 
  Country: None (occurrence: None)
  Receive Date: 20090218
  Receipt Date: 20090204
  Transmission Date: 20090719
  Serious: Yes (Hospitalization, Other)
  Sender: FDA-Public Use
  Company Number: US-RANBAXY-2009RR-21692

PATIENT
  Sex: Female

DRUGS (4)
  1. GABAPENTIN [Suspect]
     Indication: PAIN
     Dosage: 2700 MG, QD
     Route: 048
     Dates: start: 20080320, end: 20080401
  2. GABAPENTIN [Suspect]
     Indication: NEURODEGENERATIVE DISORDER
  3. NEURONTIN [Concomitant]
     Dosage: 4500 MG, QD
  4. NEURONTIN [Concomitant]
     Indication: PAIN
     Dosage: 4800 MG, UNK
     Dates: start: 20080401, end: 20080901

REACTIONS (4)
  - DRUG INEFFECTIVE [None]
  - MYOCARDIAL INFARCTION [None]
  - PAIN [None]
  - SUICIDAL IDEATION [None]
